FAERS Safety Report 8296638-4 (Version None)
Quarter: 2012Q2

REPORT INFORMATION
  Report Type: 
  Country: None (occurrence: None)
  Receive Date: 20120418
  Receipt Date: 20120418
  Transmission Date: 20120825
  Serious: Yes (Life-Threatening)
  Sender: FDA-Public Use
  Company Number: None

PATIENT
  Age: 11 Year
  Sex: Female
  Weight: 40.823 kg

DRUGS (1)
  1. ZYRTEC ALLERGY [Suspect]
     Indication: MULTIPLE ALLERGIES
     Dosage: 1 TABLET
     Dates: start: 20120401, end: 20120403

REACTIONS (1)
  - CONVULSION [None]
